FAERS Safety Report 20491801 (Version 2)
Quarter: 2022Q1

REPORT INFORMATION
  Report Type: Spontaneous
  Country: FR (occurrence: None)
  Receive Date: 20220218
  Receipt Date: 20220308
  Transmission Date: 20220423
  Serious: Yes (Other)
  Sender: FDA-Public Use
  Company Number: FR-Merck Healthcare KGaA-9299800

PATIENT
  Age: 41 Year
  Sex: Female

DRUGS (1)
  1. LEVOTHYROXINE [Suspect]
     Active Substance: LEVOTHYROXINE
     Indication: Post procedural hypothyroidism
     Dosage: NEW FORMULATION
     Dates: start: 2017

REACTIONS (13)
  - Gastrointestinal disorder [Unknown]
  - Illness [Unknown]
  - Pain [Unknown]
  - Alopecia [Unknown]
  - Depression [Unknown]
  - Arthralgia [Unknown]
  - Fatigue [Unknown]
  - Muscle atrophy [Unknown]
  - Amnesia [Unknown]
  - Asthenia [Unknown]
  - Loss of personal independence in daily activities [Unknown]
  - Insomnia [Unknown]
  - Muscle spasms [Unknown]

NARRATIVE: CASE EVENT DATE: 20170101
